FAERS Safety Report 14256376 (Version 1)
Quarter: 2017Q4

REPORT INFORMATION
  Report Type: Spontaneous
  Country: CN (occurrence: CN)
  Receive Date: 20171206
  Receipt Date: 20171206
  Transmission Date: 20180321
  Serious: Yes (Hospitalization, Other)
  Sender: FDA-Public Use
  Company Number: CN-JNJFOC-20171132563

PATIENT

DRUGS (1)
  1. TOPAMAX [Suspect]
     Active Substance: TOPIRAMATE
     Indication: EPILEPSY
     Dosage: 0.5 TO 1 MG/(KG.D) INCREASED TO 0.5 TO 1 MG/(KG.D) PER WEEK
     Route: 048

REACTIONS (8)
  - Dyspnoea [Recovering/Resolving]
  - Rash [Recovered/Resolved]
  - Hospitalisation [Unknown]
  - Somnolence [Recovering/Resolving]
  - Seizure [Recovering/Resolving]
  - Chest discomfort [Recovering/Resolving]
  - Fatigue [Recovering/Resolving]
  - Adverse event [Unknown]
